FAERS Safety Report 8348504-3 (Version None)
Quarter: 2012Q2

REPORT INFORMATION
  Report Type: 
  Country: None (occurrence: None)
  Receive Date: 20120509
  Receipt Date: 20120501
  Transmission Date: 20120825
  Serious: Yes (Other)
  Sender: FDA-Public Use
  Company Number: US-RB-039881-12

PATIENT
  Age: 66 Year
  Sex: Male

DRUGS (2)
  1. SUBOXONE [Suspect]
     Dosage: VARIOUS DOSES
     Route: 060
     Dates: start: 20120101
  2. SUBOXONE [Suspect]
     Indication: DRUG DEPENDENCE
     Route: 060
     Dates: start: 20100101, end: 20120101

REACTIONS (4)
  - WRONG TECHNIQUE IN DRUG USAGE PROCESS [None]
  - RENAL NEOPLASM [None]
  - UNDERDOSE [None]
  - BACK PAIN [None]
